FAERS Safety Report 5938130-5 (Version None)
Quarter: 2008Q4

REPORT INFORMATION
  Report Type: 
  Country: None (occurrence: None)
  Receive Date: 20081031
  Receipt Date: 20081030
  Transmission Date: 20090506
  Serious: Yes (Death, Other)
  Sender: FDA-Public Use
  Company Number: US-ROXANE LABORATORIES, INC.-2008-RO-00182RO

PATIENT
  Sex: Male

DRUGS (2)
  1. SODIUM POLYSTYRENE SULFONATE [Suspect]
     Dates: start: 20080918
  2. SODIUM POLYSTYRENE SULFONATE [Suspect]
     Dates: start: 20080919

REACTIONS (3)
  - ASPIRATION [None]
  - DEATH [None]
  - INTERSTITIAL LUNG DISEASE [None]
